FAERS Safety Report 5535188-2 (Version None)
Quarter: 2007Q4

REPORT INFORMATION
  Report Type: 
  Country: None (occurrence: None)
  Receive Date: 20071206
  Receipt Date: 20071130
  Transmission Date: 20080405
  Serious: Yes (Disabling, Other)
  Sender: FDA-Public Use
  Company Number: PHRM2007FR02259

PATIENT
  Age: 76 Year
  Sex: Male

DRUGS (7)
  1. RECLAST [Suspect]
     Indication: OSTEITIS DEFORMANS
     Dosage: 5 MG, QD
     Route: 042
     Dates: start: 20070920
  2. METFORMIN HCL [Concomitant]
  3. ROWASA [Concomitant]
  4. LECTIL [Concomitant]
  5. PLAVIX [Concomitant]
  6. ATACAND [Concomitant]
  7. TAHOR [Concomitant]

REACTIONS (5)
  - BONE PAIN [None]
  - DIABETIC NEUROPATHY [None]
  - HOT FLUSH [None]
  - INFLUENZA LIKE ILLNESS [None]
  - PYREXIA [None]
